FAERS Safety Report 7361911-0 (Version None)
Quarter: 2011Q1

REPORT INFORMATION
  Report Type: 
  Country: None (occurrence: None)
  Receive Date: 20110318
  Receipt Date: 20110309
  Transmission Date: 20110831
  Serious: Yes (Other)
  Sender: FDA-Public Use
  Company Number: US-MYLANLABS-2011S1004782

PATIENT
  Age: 54 Year
  Sex: Male

DRUGS (6)
  1. ZOCOR [Concomitant]
     Indication: BLOOD CHOLESTEROL
  2. CRESTOR [Concomitant]
     Indication: BLOOD CHOLESTEROL
  3. LEVOTHYROXINE SODIUM [Concomitant]
     Indication: HYPOTHYROIDISM
  4. ASPIRIN [Concomitant]
  5. FENTANYL-100 [Suspect]
     Indication: BACK PAIN
     Dosage: CHANGED Q72H.
     Route: 062
     Dates: start: 20110307, end: 20110309
  6. COUMADIN [Concomitant]
     Indication: ANTICOAGULANT THERAPY

REACTIONS (4)
  - PRURITUS ALLERGIC [None]
  - SLEEP TERROR [None]
  - AGITATION [None]
  - FAECALOMA [None]
